FAERS Safety Report 9558319 (Version 1)
Quarter: 2013Q3

REPORT INFORMATION
  Report Type: Spontaneous
  Country: FR (occurrence: FR)
  Receive Date: 20130926
  Receipt Date: 20130926
  Transmission Date: 20140515
  Serious: Yes (Hospitalization)
  Sender: FDA-Public Use
  Company Number: FR-BAXTER-2013BAX037036

PATIENT
  Age: 75 Year
  Sex: Male

DRUGS (5)
  1. ENDOXAN 2000 MG, LYOPHILISAT POUR SOLUTION INJECTABLE [Suspect]
     Indication: PRODUCT USED FOR UNKNOWN INDICATION
     Route: 042
     Dates: start: 20130712, end: 20130712
  2. MABTHERA [Concomitant]
     Indication: PRODUCT USED FOR UNKNOWN INDICATION
     Dosage: 375 MG/M2
     Route: 065
     Dates: start: 20130801
  3. MABTHERA [Concomitant]
     Dosage: DAY 8
     Route: 065
  4. MABTHERA [Concomitant]
     Dosage: DAY 15
     Route: 065
  5. MABTHERA [Concomitant]
     Dosage: DAY 21
     Route: 065

REACTIONS (1)
  - Posterior reversible encephalopathy syndrome [Recovered/Resolved]
